FAERS Safety Report 6921928-4 (Version None)
Quarter: 2010Q3

REPORT INFORMATION
  Report Type: 
  Country: None (occurrence: None)
  Receive Date: 20100812
  Receipt Date: 20100729
  Transmission Date: 20110219
  Serious: Yes (Other)
  Sender: FDA-Public Use
  Company Number: JP-MYLANLABS-2010S1013614

PATIENT
  Age: 69 Year
  Sex: Male

DRUGS (3)
  1. CARBOPLATIN [Suspect]
     Indication: LUNG ADENOCARCINOMA STAGE IV
     Route: 041
  2. TAXOTERE [Suspect]
     Indication: LUNG ADENOCARCINOMA STAGE IV
     Route: 041
  3. PACLITAXEL [Suspect]
     Indication: LUNG ADENOCARCINOMA STAGE IV
     Route: 041

REACTIONS (2)
  - ACUTE MYELOID LEUKAEMIA [None]
  - SEPSIS [None]
